FAERS Safety Report 18312664 (Version 1)
Quarter: 2020Q3

REPORT INFORMATION
  Report Type: Spontaneous
  Country: BR (occurrence: BR)
  Receive Date: 20200925
  Receipt Date: 20200925
  Transmission Date: 20201103
  Serious: Yes (Other)
  Sender: FDA-Public Use
  Company Number: BR-AMGEN-BRASP2020151474

PATIENT
  Age: 77 Year
  Sex: Female
  Weight: 66 kg

DRUGS (5)
  1. DAFLON [DIOSMIN;HESPERIDIN] [Concomitant]
     Active Substance: DIOSMIN\HESPERIDIN
     Indication: PERIPHERAL VASCULAR DISORDER
     Dosage: 1000 MILLIGRAM
  2. SELOZOK [Concomitant]
     Active Substance: METOPROLOL SUCCINATE
     Indication: BLOOD PRESSURE ABNORMAL
  3. PROLIA [Suspect]
     Active Substance: DENOSUMAB
     Indication: BONE DISORDER
     Dosage: UNK UNK, Q6MO
     Route: 058
     Dates: start: 20200313
  4. SUNNYD [Concomitant]
     Dosage: 5000 UI
  5. SELOZOK [Concomitant]
     Active Substance: METOPROLOL SUCCINATE
     Indication: TACHYCARDIA
     Dosage: 25 MILLIGRAM

REACTIONS (11)
  - Palpitations [Unknown]
  - Dyspnoea [Recovered/Resolved]
  - Injection site swelling [Not Recovered/Not Resolved]
  - Nervousness [Recovered/Resolved]
  - Vasodilatation [Unknown]
  - Device use error [Unknown]
  - Incorrect dose administered [Unknown]
  - Throat tightness [Recovered/Resolved]
  - Arteriosclerosis coronary artery [Unknown]
  - Injection site pain [Not Recovered/Not Resolved]
  - Dysuria [Unknown]

NARRATIVE: CASE EVENT DATE: 20200916
